FAERS Safety Report 23684885 (Version 1)
Quarter: 2024Q1

REPORT INFORMATION
  Report Type: Report from Study
  Country: CA (occurrence: CA)
  Receive Date: 20240328
  Receipt Date: 20240328
  Transmission Date: 20240409
  Serious: Yes (Other)
  Sender: FDA-Public Use
  Company Number: CA-JNJFOC-20210935474

PATIENT
  Age: 15 Year
  Sex: Female
  Weight: 59 kg

DRUGS (5)
  1. REMICADE [Suspect]
     Active Substance: INFLIXIMAB
     Indication: Colitis ulcerative
     Route: 041
     Dates: start: 20210915
  2. REMICADE [Suspect]
     Active Substance: INFLIXIMAB
     Indication: Crohn^s disease
     Dosage: ON 23-SEP-2021 THE PATIENT RECEIVED DOSE.
     Route: 041
  3. REMICADE [Suspect]
     Active Substance: INFLIXIMAB
     Route: 041
  4. REMICADE [Suspect]
     Active Substance: INFLIXIMAB
     Route: 041
     Dates: start: 202111
  5. REMICADE [Suspect]
     Active Substance: INFLIXIMAB
     Route: 041

REACTIONS (3)
  - Crohn^s disease [Unknown]
  - Abscess [Unknown]
  - Off label use [Unknown]
